FAERS Safety Report 12049432 (Version 1)
Quarter: 2016Q1

REPORT INFORMATION
  Report Type: Spontaneous
  Country: US (occurrence: None)
  Receive Date: 20160208
  Receipt Date: 20160208
  Transmission Date: 20160526
  Serious: Yes (Disabling)
  Sender: FDA-Public Use
  Company Number: None

PATIENT
  Age: 29 Year
  Sex: Female
  Weight: 90.72 kg

DRUGS (2)
  1. NATAZIA [Suspect]
     Active Substance: DIENOGEST\ESTRADIOL VALERATE
     Indication: CONTRACEPTION
     Route: 048
     Dates: start: 20150101, end: 20160114
  2. MOTRIN [Concomitant]
     Active Substance: IBUPROFEN

REACTIONS (3)
  - Protein urine [None]
  - Joint swelling [None]
  - Headache [None]

NARRATIVE: CASE EVENT DATE: 20160112
